FAERS Safety Report 6330484-3 (Version None)
Quarter: 2009Q3

REPORT INFORMATION
  Report Type: 
  Country: None (occurrence: None)
  Receive Date: 20090827
  Receipt Date: 20090427
  Transmission Date: 20100115
  Serious: Yes (Hospitalization)
  Sender: FDA-Public Use
  Company Number: A0777797A

PATIENT
  Age: 27 Year
  Sex: Male
  Weight: 79.5 kg

DRUGS (21)
  1. ACYCLOVIR [Suspect]
     Indication: MENINGITIS
     Dosage: 800MG THREE TIMES PER DAY
     Route: 042
     Dates: start: 20090331, end: 20090406
  2. ROCEPHIN [Concomitant]
     Dosage: 2G PER DAY
     Route: 042
     Dates: start: 20090331, end: 20090406
  3. VANCOMYCIN [Concomitant]
     Dosage: 1500MG TWICE PER DAY
     Route: 042
     Dates: start: 20090331, end: 20090406
  4. ATIVAN [Concomitant]
     Dosage: 1MG AS REQUIRED
     Route: 042
     Dates: start: 20090405, end: 20090409
  5. CATAPRES [Concomitant]
     Dosage: .1MG AS REQUIRED
     Route: 048
     Dates: start: 20090407, end: 20090409
  6. DILAUDID [Concomitant]
     Route: 042
     Dates: start: 20090330, end: 20090409
  7. PHENERGAN [Concomitant]
     Route: 042
     Dates: start: 20090331, end: 20090409
  8. REGLAN [Concomitant]
     Route: 042
  9. RESTORIL [Concomitant]
     Dosage: 30MG AT NIGHT
     Route: 048
     Dates: start: 20090405, end: 20090409
  10. TYLENOL (CAPLET) [Concomitant]
     Route: 048
     Dates: start: 20090330, end: 20090409
  11. ZOFRAN [Concomitant]
     Route: 042
     Dates: start: 20090408, end: 20090409
  12. PROTONIX [Concomitant]
     Dosage: 40MG PER DAY
     Route: 048
     Dates: start: 20090330, end: 20090409
  13. SODIUM CHLORIDE [Concomitant]
     Route: 042
     Dates: start: 20090330, end: 20090409
  14. TORADOL [Concomitant]
     Dosage: 30MG AS REQUIRED
     Route: 042
     Dates: start: 20090330, end: 20090407
  15. DEMEROL [Concomitant]
     Dosage: 25MG AS REQUIRED
     Route: 042
     Dates: start: 20090408, end: 20090409
  16. APAP TAB [Concomitant]
     Dosage: 1000MG AS REQUIRED
     Route: 048
     Dates: start: 20090401, end: 20090409
  17. CARDENE [Concomitant]
     Route: 042
     Dates: start: 20090408, end: 20090409
  18. OTHER MEDICATIONS [Concomitant]
     Route: 042
     Dates: start: 20090405, end: 20090405
  19. OTHER MEDICATIONS [Concomitant]
     Route: 042
     Dates: start: 20090331, end: 20090331
  20. NEURONTIN [Concomitant]
     Route: 048
     Dates: start: 20090406, end: 20090407
  21. CATAPRES-TTS-1 [Concomitant]
     Dates: start: 20090408

REACTIONS (1)
  - BLOOD CREATININE INCREASED [None]
